FAERS Safety Report 6879293-7 (Version None)
Quarter: 2010Q3

REPORT INFORMATION
  Report Type: 
  Country: None (occurrence: None)
  Receive Date: 20100728
  Receipt Date: 20100720
  Transmission Date: 20110219
  Serious: Yes (Other)
  Sender: FDA-Public Use
  Company Number: US-SANOFI-AVENTIS-2010SA029626

PATIENT
  Age: 65 Year
  Sex: Female

DRUGS (10)
  1. MULTAQ [Suspect]
     Route: 048
     Dates: start: 20100401, end: 20100401
  2. COREG [Concomitant]
  3. LOVAZA [Concomitant]
  4. ALDACTONE [Concomitant]
  5. COUMADIN [Concomitant]
  6. ALLEGRA [Concomitant]
  7. DIGOXIN [Concomitant]
  8. POTASSIUM [Concomitant]
  9. LASIX [Concomitant]
  10. LEVOTHYROXINE SODIUM [Concomitant]

REACTIONS (2)
  - CARDIAC FAILURE [None]
  - DYSPNOEA [None]
